FAERS Safety Report 4273106-8 (Version None)
Quarter: 2004Q1

REPORT INFORMATION
  Report Type: 
  Country: None (occurrence: None)
  Receive Date: 20040116
  Receipt Date: 20040113
  Transmission Date: 20041129
  Serious: Yes (Death)
  Sender: FDA-Public Use
  Company Number: PHBS2004ES00771

PATIENT
  Age: 14 Year
  Sex: Male

DRUGS (1)
  1. TEGRETOL [Suspect]
     Indication: EPILEPSY
     Route: 065

REACTIONS (3)
  - DEPRESSION [None]
  - DYSPLASIA [None]
  - EPILEPSY [None]
